FAERS Safety Report 7551412-9 (Version None)
Quarter: 2011Q2

REPORT INFORMATION
  Report Type: 
  Country: None (occurrence: None)
  Receive Date: 20110616
  Receipt Date: 20110606
  Transmission Date: 20111010
  Serious: Yes (Hospitalization)
  Sender: FDA-Public Use
  Company Number: US-AMGEN-USASP2011029097

PATIENT
  Age: 62 Year
  Sex: Male

DRUGS (2)
  1. ENBREL [Suspect]
     Indication: RHEUMATOID ARTHRITIS
     Dosage: 50 MG, QWK
     Dates: start: 20030117, end: 20110501
  2. ENBREL [Suspect]
     Indication: INTERVERTEBRAL DISC DEGENERATION

REACTIONS (9)
  - INTERVERTEBRAL DISC DEGENERATION [None]
  - THERAPEUTIC RESPONSE DECREASED [None]
  - STAPHYLOCOCCAL INFECTION [None]
  - PYREXIA [None]
  - BACK PAIN [None]
  - NERVE ROOT COMPRESSION [None]
  - INCISION SITE COMPLICATION [None]
  - HYPERHIDROSIS [None]
  - SEPTIC SHOCK [None]
